FAERS Safety Report 4811492-8 (Version None)
Quarter: 2005Q4

REPORT INFORMATION
  Report Type: 
  Country: None (occurrence: None)
  Receive Date: 20051027
  Receipt Date: 20051017
  Transmission Date: 20060501
  Serious: Yes (Other)
  Sender: FDA-Public Use
  Company Number: SE-BRISTOL-MYERS SQUIBB COMPANY-13146089

PATIENT
  Age: 41 Year
  Sex: Female

DRUGS (5)
  1. REYATAZ [Suspect]
     Indication: HIV INFECTION
  2. VIREAD [Suspect]
     Indication: HIV INFECTION
  3. NORVIR [Suspect]
     Indication: HIV INFECTION
  4. EPIVIR [Suspect]
     Indication: HIV INFECTION
  5. IMOVANE [Concomitant]

REACTIONS (2)
  - ABORTION SPONTANEOUS [None]
  - PREGNANCY [None]
